FAERS Safety Report 7075088-2 (Version None)
Quarter: 2010Q4

REPORT INFORMATION
  Report Type: 
  Country: None (occurrence: None)
  Receive Date: 20101029
  Receipt Date: 20100416
  Transmission Date: 20110411
  Serious: No
  Sender: FDA-Public Use
  Company Number: US-WYE-H14566810

PATIENT
  Sex: Female

DRUGS (1)
  1. ALAVERT [Suspect]

REACTIONS (2)
  - DRUG EFFECT DECREASED [None]
  - OVERDOSE [None]
